FAERS Safety Report 8418445-1 (Version None)
Quarter: 2012Q2

REPORT INFORMATION
  Report Type: 
  Country: None (occurrence: None)
  Receive Date: 20120607
  Receipt Date: 20120531
  Transmission Date: 20120825
  Serious: Yes (Other)
  Sender: FDA-Public Use
  Company Number: US-PFIZER INC-2012132359

PATIENT

DRUGS (1)
  1. LYRICA [Suspect]
     Indication: PAIN
     Dosage: UNK

REACTIONS (3)
  - DIABETES MELLITUS [None]
  - WEIGHT INCREASED [None]
  - WEIGHT DECREASED [None]
